FAERS Safety Report 6436058-8 (Version None)
Quarter: 2009Q4

REPORT INFORMATION
  Report Type: 
  Country: None (occurrence: None)
  Receive Date: 20091110
  Receipt Date: 20091110
  Transmission Date: 20100525
  Serious: Yes (Hospitalization)
  Sender: FDA-Public Use
  Company Number: None

PATIENT
  Age: 19 Year

DRUGS (2)
  1. SULFAMETHOXAZOLE AND TRIMETHOPRIM [Suspect]
     Indication: INGROWING NAIL
     Dosage: 800/160 MG BID PO
     Route: 048
     Dates: start: 20080731, end: 20080807
  2. SULFAMETHOXAZOLE AND TRIMETHOPRIM [Suspect]
     Indication: SURGERY
     Dosage: 800/160 MG BID PO
     Route: 048
     Dates: start: 20080731, end: 20080807

REACTIONS (4)
  - ASTHENIA [None]
  - BODY TEMPERATURE INCREASED [None]
  - PRURITUS [None]
  - URTICARIA [None]
